FAERS Safety Report 6071220-8 (Version None)
Quarter: 2009Q1

REPORT INFORMATION
  Report Type: 
  Country: None (occurrence: None)
  Receive Date: 20090209
  Receipt Date: 20090129
  Transmission Date: 20090719
  Serious: Yes (Hospitalization)
  Sender: FDA-Public Use
  Company Number: US-ELI_LILLY_AND_COMPANY-US_010464321

PATIENT
  Age: 57 Year
  Sex: Female

DRUGS (3)
  1. EVISTA [Suspect]
     Indication: PROPHYLAXIS
     Dosage: 60 MG, DAILY (1/D)
     Route: 048
     Dates: start: 19980101, end: 20010416
  2. ZOLOFT [Concomitant]
     Indication: DEPRESSION
     Dosage: 50 MG, DAILY (1/D)
     Route: 048
  3. TENORMIN [Concomitant]
     Indication: ARRHYTHMIA
     Dosage: 25 MG, QOD
     Route: 048

REACTIONS (1)
  - COLITIS ISCHAEMIC [None]
